FAERS Safety Report 7596424-4 (Version None)
Quarter: 2011Q3

REPORT INFORMATION
  Report Type: 
  Country: None (occurrence: None)
  Receive Date: 20110707
  Receipt Date: 20110704
  Transmission Date: 20111222
  Serious: Yes (Other)
  Sender: FDA-Public Use
  Company Number: GB-ABBOTT-10P-167-0677464-00

PATIENT
  Sex: Male
  Weight: 76.2 kg

DRUGS (6)
  1. HUMIRA [Suspect]
     Route: 058
  2. HUMIRA [Suspect]
     Indication: CROHN'S DISEASE
     Route: 058
     Dates: start: 20100625, end: 20100920
  3. AZATHIOPRINE [Concomitant]
     Indication: CROHN'S DISEASE
     Dates: start: 20091003
  4. MESALAMINE [Concomitant]
     Indication: PRODUCT USED FOR UNKNOWN INDICATION
  5. MESALAMINE [Concomitant]
     Indication: CROHN'S DISEASE
     Route: 048
     Dates: start: 20100511
  6. PREDNISOLONE [Concomitant]
     Indication: CROHN'S DISEASE
     Dates: start: 20091001

REACTIONS (6)
  - PSORIASIS [None]
  - ECZEMA [None]
  - SKIN LESION [None]
  - DERMATITIS PSORIASIFORM [None]
  - PAIN IN EXTREMITY [None]
  - EPHELIDES [None]
